FAERS Safety Report 16386803 (Version 4)
Quarter: 2019Q2

REPORT INFORMATION
  Report Type: Report from Study
  Country: None (occurrence: ES)
  Receive Date: 20190604
  Receipt Date: 20190617
  Transmission Date: 20190711
  Serious: Yes (Hospitalization)
  Sender: FDA-Public Use
  Company Number: ES-ABBVIE-19S-144-2807128-00

PATIENT
  Age: 75 Year
  Sex: Male

DRUGS (1)
  1. DUODOPA [Suspect]
     Active Substance: CARBIDOPA\LEVODOPA
     Indication: PARKINSON^S DISEASE
     Route: 050
     Dates: start: 20161110

REACTIONS (9)
  - Musculoskeletal stiffness [Recovered/Resolved]
  - Urinary tract infection [Not Recovered/Not Resolved]
  - Diarrhoea [Recovered/Resolved]
  - Gait inability [Recovered/Resolved]
  - Disorganised speech [Recovered/Resolved]
  - Asthenia [Recovered/Resolved]
  - Rectal haemorrhage [Recovered/Resolved]
  - Discomfort [Not Recovered/Not Resolved]
  - Haematochezia [Unknown]

NARRATIVE: CASE EVENT DATE: 20190529
